FAERS Safety Report 8429198-5 (Version None)
Quarter: 2012Q2

REPORT INFORMATION
  Report Type: 
  Country: None (occurrence: None)
  Receive Date: 20120612
  Receipt Date: 20120604
  Transmission Date: 20120825
  Serious: Yes (Other)
  Sender: FDA-Public Use
  Company Number: US-BAYER-2012-039202

PATIENT
  Age: 41 Year
  Sex: Female

DRUGS (4)
  1. DROSPIRENONE AND ETHINYL ESTRADIOL [Suspect]
     Dosage: UNK
     Route: 048
  2. MULTI-VITAMIN [Concomitant]
     Dosage: UNK UNK, QD
  3. YASMIN [Suspect]
     Dosage: UNK
     Route: 048
  4. YAZ [Suspect]
     Dosage: UNK
     Route: 048

REACTIONS (4)
  - PAIN [None]
  - INJURY [None]
  - DEEP VEIN THROMBOSIS [None]
  - PULMONARY EMBOLISM [None]
